FAERS Safety Report 14388909 (Version 2)
Quarter: 2018Q2

REPORT INFORMATION
  Report Type: Spontaneous
  Country: US (occurrence: US)
  Receive Date: 20180115
  Receipt Date: 20180605
  Transmission Date: 20180711
  Serious: Yes (Other)
  Sender: FDA-Public Use
  Company Number: US-SA-2017SA230463

PATIENT
  Age: 43 Year
  Sex: Female
  Weight: 43.54 kg

DRUGS (2)
  1. TAXOTERE [Suspect]
     Active Substance: DOCETAXEL
     Indication: BREAST CANCER
     Dosage: 105 MG,QCY
     Route: 042
     Dates: start: 20090528, end: 20090528
  2. TAXOTERE [Suspect]
     Active Substance: DOCETAXEL
     Dosage: 105 MG,QCY
     Route: 042
     Dates: start: 20090910, end: 20090910

REACTIONS (1)
  - Alopecia [Not Recovered/Not Resolved]

NARRATIVE: CASE EVENT DATE: 20100310
